FAERS Safety Report 4906528-X (Version None)
Quarter: 2006Q1

REPORT INFORMATION
  Report Type: 
  Country: None (occurrence: None)
  Receive Date: 20060206
  Receipt Date: 20060120
  Transmission Date: 20060701
  Serious: Yes (Death)
  Sender: FDA-Public Use
  Company Number: 2005JP001842

PATIENT
  Age: 77 Year
  Sex: Female
  Weight: 38.5 kg

DRUGS (8)
  1. FUNGUARD (MICAFUNGIN INJECTION) [Suspect]
     Indication: FUNGAL INFECTION
     Dosage: SEE IMAGE
     Route: 041
     Dates: start: 20050830, end: 20050913
  2. FUNGUARD (MICAFUNGIN INJECTION) [Suspect]
     Indication: FUNGAL INFECTION
     Dosage: SEE IMAGE
     Route: 041
     Dates: start: 20050914, end: 20051028
  3. CARBENIN (BETAMIPRON, PANIPENEM) INJECTION [Suspect]
     Dosage: 1500 MG, IV  NOS
     Route: 042
     Dates: start: 20050904, end: 20050908
  4. PIPERACILLIN SODIUM [Concomitant]
  5. CEFOZOPRAN HYDROCHLORIDE (CEFOZOPRAN HYDROCHLORIDE) [Concomitant]
  6. GENTAMICIN SULFATE [Concomitant]
  7. G-CSF (GRANULOCYTE COLONY STIMULATING FACTOR) [Concomitant]
  8. NEUTROGIN (LENOGRASTIM) [Concomitant]

REACTIONS (11)
  - ALANINE AMINOTRANSFERASE INCREASED [None]
  - ASPARTATE AMINOTRANSFERASE INCREASED [None]
  - BLOOD PRESSURE INCREASED [None]
  - BRAIN COMPRESSION [None]
  - CEREBELLAR HAEMATOMA [None]
  - CEREBRAL HAEMORRHAGE [None]
  - LIVER DISORDER [None]
  - NEUTROPHIL COUNT DECREASED [None]
  - PYREXIA [None]
  - VENTRICLE RUPTURE [None]
  - VOMITING [None]
